FAERS Safety Report 16115507 (Version 1)
Quarter: 2019Q1

REPORT INFORMATION
  Report Type: Report from Study
  Country: AU (occurrence: AU)
  Receive Date: 20190325
  Receipt Date: 20190325
  Transmission Date: 20190418
  Serious: Yes (Hospitalization, Other)
  Sender: FDA-Public Use
  Company Number: AU-KYOWAKIRIN-2018BKK006325AA

PATIENT

DRUGS (5)
  1. BUROSUMAB [Suspect]
     Active Substance: BUROSUMAB
     Dosage: 1.2 MG/KG (1.2 MG/KG,1 IN 2 WK)
     Route: 058
     Dates: start: 20180718
  2. CALCIUM + VITAMIN D                /00944201/ [Concomitant]
     Active Substance: CALCIUM CARBONATE\CHOLECALCIFEROL
     Indication: PRODUCT USED FOR UNKNOWN INDICATION
     Dosage: 600 IU PLUS 700 MG, 1 IN 1 D
     Route: 048
     Dates: start: 20171230, end: 20180926
  3. BUROSUMAB [Suspect]
     Active Substance: BUROSUMAB
     Indication: HEREDITARY HYPOPHOSPHATAEMIC RICKETS
     Dosage: 0.8 MG/KG (0.8 MG/KG,1 IN 2 WK)
     Route: 058
     Dates: start: 20170315
  4. VENTOLIN [Concomitant]
     Active Substance: ALBUTEROL SULFATE
     Indication: PRODUCT USED FOR UNKNOWN INDICATION
     Dosage: 3-4 PUFFS (100 MCG, AS REQUIRED)
     Route: 055
     Dates: start: 20180402
  5. FLIXOTIDE [Concomitant]
     Active Substance: FLUTICASONE PROPIONATE
     Indication: PRODUCT USED FOR UNKNOWN INDICATION
     Dosage: 2 PUFFS (50 MCG, AS REQUIRED)
     Route: 055
     Dates: start: 20180402

REACTIONS (1)
  - Papilloedema [Recovering/Resolving]

NARRATIVE: CASE EVENT DATE: 20180720
